FAERS Safety Report 6297549-6 (Version None)
Quarter: 2009Q3

REPORT INFORMATION
  Report Type: 
  Country: None (occurrence: None)
  Receive Date: 20090805
  Receipt Date: 20090728
  Transmission Date: 20100115
  Serious: Yes (Hospitalization)
  Sender: FDA-Public Use
  Company Number: JP-ASTRAZENECA-2009SE06453

PATIENT
  Age: 58 Year
  Sex: Male

DRUGS (3)
  1. ECARD [Suspect]
     Indication: HYPERTENSION
     Route: 048
     Dates: start: 20090301, end: 20090701
  2. TENORMIN [Concomitant]
     Route: 048
  3. ALOSITOL [Concomitant]
     Route: 048

REACTIONS (1)
  - HEPATITIS ACUTE [None]
